FAERS Safety Report 6858331-1 (Version None)
Quarter: 2010Q3

REPORT INFORMATION
  Report Type: 
  Country: None (occurrence: None)
  Receive Date: 20100719
  Receipt Date: 20080404
  Transmission Date: 20110219
  Serious: No
  Sender: FDA-Public Use
  Company Number: US-PFIZER INC-2008012295

PATIENT
  Sex: Female

DRUGS (9)
  1. CHANTIX [Suspect]
     Indication: SMOKING CESSATION THERAPY
     Dates: start: 20080208
  2. LIPITOR [Concomitant]
  3. ZETIA [Concomitant]
  4. EFFEXOR [Concomitant]
  5. NEXIUM [Concomitant]
  6. TRAZODONE HYDROCHLORIDE [Concomitant]
  7. ADVAIR DISKUS 100/50 [Concomitant]
  8. LAMICTAL [Concomitant]
  9. KLONOPIN [Concomitant]

REACTIONS (4)
  - DRUG DOSE OMISSION [None]
  - DRUG INEFFECTIVE [None]
  - MEDICATION ERROR [None]
  - VOMITING PROJECTILE [None]
